FAERS Safety Report 7138743-1 (Version None)
Quarter: 2010Q4

REPORT INFORMATION
  Report Type: 
  Country: None (occurrence: None)
  Receive Date: 20101122
  Receipt Date: 20101108
  Transmission Date: 20110411
  Serious: Yes (Hospitalization)
  Sender: FDA-Public Use
  Company Number: 1-21232660

PATIENT
  Age: 53 Year
  Sex: Female
  Weight: 68.0396 kg

DRUGS (15)
  1. FENTANYL CITRATE [Suspect]
     Indication: FIBROMYALGIA
     Dosage: 100 MCG/HR Q 72 HR, TRANSDERMAL
     Route: 062
     Dates: start: 20091201
  2. FLUOROMETHOLONE [Suspect]
     Dosage: 1 DROP PER EYE, 3 X DAY, OPHTHALMIC
     Route: 047
  3. FENTANYL-100 [Suspect]
     Indication: FIBROMYALGIA
     Route: 062
  4. RESTASIS [Concomitant]
  5. FLAX SEED OIL 2000 MG [Concomitant]
  6. SOMA [Concomitant]
  7. REMERON [Concomitant]
  8. PREMARIN [Concomitant]
  9. CLONAZEPAM [Concomitant]
  10. DETROL LA [Concomitant]
  11. VICODIN [Concomitant]
  12. DULCOLAX [Concomitant]
  13. MIRALAX [Concomitant]
  14. MAGNESIUM SOLUTION [Concomitant]
  15. PROZAC [Concomitant]

REACTIONS (21)
  - ABASIA [None]
  - ADHESION [None]
  - ASTHENIA [None]
  - BLINDNESS [None]
  - CHEST PAIN [None]
  - CONSTIPATION [None]
  - DYSKINESIA [None]
  - FEELING HOT [None]
  - FLUSHING [None]
  - HYPERHIDROSIS [None]
  - INCORRECT DOSE ADMINISTERED [None]
  - OVERDOSE [None]
  - PAIN [None]
  - PALPITATIONS [None]
  - PRODUCT ADHESION ISSUE [None]
  - PRODUCT SUBSTITUTION ISSUE [None]
  - PRURITUS GENERALISED [None]
  - RASH GENERALISED [None]
  - TACHYCARDIA [None]
  - TREMOR [None]
  - VISUAL ACUITY REDUCED [None]
